FAERS Safety Report 9240002 (Version 2)
Quarter: 2013Q3

REPORT INFORMATION
  Report Type: Spontaneous
  Country: FR (occurrence: FR)
  Receive Date: 20130418
  Receipt Date: 20130809
  Transmission Date: 20140515
  Serious: Yes (Hospitalization)
  Sender: FDA-Public Use
  Company Number: FR-GLAXOSMITHKLINE-B0883184A

PATIENT
  Age: 43 Year
  Sex: Male

DRUGS (11)
  1. LAMICTAL [Suspect]
     Indication: EPILEPSY
     Dosage: 50MG PER DAY
     Route: 048
  2. CLOPIXOL [Suspect]
     Indication: PRODUCT USED FOR UNKNOWN INDICATION
     Dosage: 30DROP PER DAY
     Route: 048
  3. NORVIR [Suspect]
     Indication: HIV INFECTION
     Dosage: 100MG IN THE MORNING
     Route: 048
  4. REYATAZ [Suspect]
     Indication: HIV INFECTION
     Dosage: 150MG PER DAY
     Route: 048
  5. VALIUM [Concomitant]
     Dosage: 2MG THREE TIMES PER DAY
     Route: 065
  6. HEPTAMYL [Concomitant]
     Dosage: 350MG PER DAY
  7. TRUVADA [Concomitant]
     Dosage: 1UNIT PER DAY
     Route: 065
  8. BACTRIM [Concomitant]
     Route: 065
  9. SPECIAFOLDINE [Concomitant]
     Route: 065
  10. TRANSIPEG [Concomitant]
     Dosage: 1UNIT IN THE MORNING
     Route: 065
  11. LANSOYL [Concomitant]
     Route: 065

REACTIONS (10)
  - Epilepsy [Recovered/Resolved]
  - Coma [Recovered/Resolved]
  - Hypothermia [Unknown]
  - Loss of consciousness [Recovered/Resolved]
  - Grand mal convulsion [Recovered/Resolved]
  - Miosis [Recovered/Resolved]
  - Agitation [Unknown]
  - Anticonvulsant drug level below therapeutic [Recovered/Resolved]
  - Treatment noncompliance [Unknown]
  - Drug interaction [Unknown]
